FAERS Safety Report 22361257 (Version 1)
Quarter: 2023Q2

REPORT INFORMATION
  Report Type: Spontaneous
  Country: CO (occurrence: CO)
  Receive Date: 20230524
  Receipt Date: 20230524
  Transmission Date: 20230722
  Serious: Yes (Death, Hospitalization, Other)
  Sender: FDA-Public Use
  Company Number: CO-TAKEDA-2023TUS051008

PATIENT
  Age: 23 Year
  Sex: Male
  Weight: 76 kg

DRUGS (1)
  1. ICLUSIG [Suspect]
     Active Substance: PONATINIB
     Indication: Chronic myeloid leukaemia
     Dosage: 45 MILLIGRAM, QD
     Route: 058
     Dates: start: 20230222, end: 20230504

REACTIONS (3)
  - Death [Fatal]
  - Chronic myeloid leukaemia transformation [Unknown]
  - Product use issue [Unknown]

NARRATIVE: CASE EVENT DATE: 20230222
